FAERS Safety Report 24572136 (Version 2)
Quarter: 2024Q4

REPORT INFORMATION
  Report Type: Report from Study
  Country: DE (occurrence: DE)
  Receive Date: 20241101
  Receipt Date: 20241202
  Transmission Date: 20250115
  Serious: Yes (Other)
  Sender: DAIICHI
  Company Number: DE-ASTRAZENECA-202410GLO017887DE

PATIENT
  Sex: Female
  Weight: 65 kg

DRUGS (7)
  1. ENHERTU [Suspect]
     Active Substance: FAM-TRASTUZUMAB DERUXTECAN-NXKI
     Indication: HER2 positive breast cancer
     Dosage: 5.4 MILLIGRAM/KILOGRAM
     Route: 042
  2. ELIQUIS [Concomitant]
     Active Substance: APIXABAN
     Indication: Product used for unknown indication
     Dosage: 2.5 MG, QD
     Route: 048
     Dates: start: 20231203
  3. ASCORBIC ACID;GLUCOSE [Concomitant]
     Indication: Nausea
     Dosage: 500 MILLIGRAM
     Route: 042
     Dates: start: 20240306
  4. NETUPITANT AND PALONOSETRON HYDROCHLORIDE [Concomitant]
     Indication: Nausea
     Dosage: 300 MG
     Route: 042
     Dates: start: 20240306
  5. DEXAMETHASONE SODIUM PHOSPHATE [Concomitant]
     Active Substance: DEXAMETHASONE SODIUM PHOSPHATE
     Indication: Nausea
     Dosage: 8 MILLIGRAM
     Route: 042
     Dates: start: 20240306
  6. DULCOLAX (BISACODYL) [Concomitant]
     Active Substance: BISACODYL
     Indication: Product used for unknown indication
     Dosage: UNK, PRN (AS NEEDED)
     Route: 054
     Dates: start: 20240725
  7. DENOSUMAB [Concomitant]
     Active Substance: DENOSUMAB
     Indication: Metastases to bone
     Dosage: 120 MILLIGRAM
     Route: 058
     Dates: start: 20240215

REACTIONS (1)
  - Obstruction gastric [Recovered/Resolved]

NARRATIVE: CASE EVENT DATE: 20241017
